FAERS Safety Report 13923016 (Version 1)
Quarter: 2017Q3

REPORT INFORMATION
  Report Type: Spontaneous
  Country: US (occurrence: US)
  Receive Date: 20170830
  Receipt Date: 20170830
  Transmission Date: 20171127
  Serious: Yes (Other)
  Sender: FDA-Public Use
  Company Number: US-BAXTER-2017BAX030824

PATIENT
  Age: 63 Year
  Sex: Male

DRUGS (2)
  1. LABETALOL [Concomitant]
     Active Substance: LABETALOL\LABETALOL HYDROCHLORIDE
     Indication: HYPERTENSIVE CRISIS
     Dosage: HIGHER DOSE
     Route: 042
  2. 5% DEXTROSE INJECTION, USP IN MINI-BAG PLUS CONTAINER [Suspect]
     Active Substance: DEXTROSE
     Indication: MEDICATION DILUTION
     Route: 042

REACTIONS (1)
  - Hyponatraemic encephalopathy [Recovering/Resolving]
